FAERS Safety Report 9120371 (Version 1)
Quarter: 2013Q1

REPORT INFORMATION
  Report Type: Spontaneous
  Country: US (occurrence: US)
  Receive Date: 20130226
  Receipt Date: 20130226
  Transmission Date: 20140127
  Serious: Yes (Other)
  Sender: FDA-Public Use
  Company Number: CHPA2013US003427

PATIENT
  Sex: Female

DRUGS (1)
  1. EXCEDRIN UNKNOWN [Suspect]
     Dosage: UNK, UNK
     Route: 065

REACTIONS (1)
  - Myocardial infarction [Unknown]
